FAERS Safety Report 9581005 (Version 2)
Quarter: 2013Q4

REPORT INFORMATION
  Report Type: Spontaneous
  Country: TW (occurrence: TW)
  Receive Date: 20131002
  Receipt Date: 20131113
  Transmission Date: 20140711
  Serious: Yes (Hospitalization)
  Sender: FDA-Public Use
  Company Number: TW-ABBVIE-13P-153-1151390-00

PATIENT
  Age: 57 Year
  Sex: Male
  Weight: 61 kg

DRUGS (1)
  1. HUMIRA [Suspect]
     Indication: CROHN^S DISEASE
     Route: 058
     Dates: start: 20120601, end: 20130830

REACTIONS (12)
  - Nephrolithiasis [Recovered/Resolved]
  - Abscess [Recovered/Resolved]
  - Small intestinal resection [Recovered/Resolved]
  - Enterostomy [Recovered/Resolved]
  - Gastroenteritis [Recovered/Resolved]
  - Asthenia [Recovered/Resolved]
  - Abdominal pain [Recovered/Resolved]
  - Pyrexia [Recovered/Resolved]
  - Calculus ureteric [Recovered/Resolved]
  - Muscle spasms [Recovered/Resolved]
  - Colostomy [Recovered/Resolved]
  - Colostomy closure [Recovered/Resolved]
